FAERS Safety Report 9540560 (Version 2)
Quarter: 2013Q4

REPORT INFORMATION
  Report Type: Spontaneous
  Country: US (occurrence: US)
  Receive Date: 20130920
  Receipt Date: 20131028
  Transmission Date: 20140711
  Serious: No
  Sender: FDA-Public Use
  Company Number: US-PFIZER INC-2013270349

PATIENT
  Age: 33 Year
  Sex: Female
  Weight: 74.83 kg

DRUGS (1)
  1. LYRICA [Suspect]
     Indication: NERVOUS SYSTEM DISORDER
     Dosage: 100 MG, 3X/DAY
     Route: 048
     Dates: start: 20130609, end: 20130729

REACTIONS (3)
  - Off label use [Unknown]
  - Sensory loss [Not Recovered/Not Resolved]
  - Female orgasmic disorder [Not Recovered/Not Resolved]
